FAERS Safety Report 6489958-7 (Version None)
Quarter: 2009Q4

REPORT INFORMATION
  Report Type: 
  Country: None (occurrence: None)
  Receive Date: 20091211
  Receipt Date: 20091130
  Transmission Date: 20100525
  Serious: Yes (Other)
  Sender: FDA-Public Use
  Company Number: PHHY2009JP51715

PATIENT

DRUGS (2)
  1. FLUVASTATIN SODIUM [Suspect]
     Route: 048
  2. RIBAVIRIN [Concomitant]

REACTIONS (1)
  - LUNG INFECTION [None]
